FAERS Safety Report 8573906-X (Version None)
Quarter: 2012Q3

REPORT INFORMATION
  Report Type: 
  Country: None (occurrence: None)
  Receive Date: 20120806
  Receipt Date: 20120606
  Transmission Date: 20120928
  Serious: No
  Sender: FDA-Public Use
  Company Number: US-GLAXOSMITHKLINE-A0980354A

PATIENT
  Age: 44 Year
  Sex: Female

DRUGS (9)
  1. FLUTICASONE PROPIONATE [Suspect]
     Indication: ASTHMA
     Dosage: 1PUFF TWICE PER DAY
     Route: 055
  2. HYDROXYCHLOROQUINE SULFATE [Concomitant]
  3. CLARITIN [Concomitant]
  4. BUTABITAL + CAFFEINE + PARACETAMOL [Concomitant]
  5. VENTOLIN [Concomitant]
  6. STOOL SOFTENER [Concomitant]
  7. SINGULAIR [Concomitant]
  8. TRAMADOL HCL [Concomitant]
  9. MUCINEX [Concomitant]

REACTIONS (3)
  - ILL-DEFINED DISORDER [None]
  - DRUG INEFFECTIVE [None]
  - PRODUCT QUALITY ISSUE [None]
